FAERS Safety Report 18106822 (Version 1)
Quarter: 2020Q3

REPORT INFORMATION
  Report Type: Spontaneous
  Country: US (occurrence: US)
  Receive Date: 20200803
  Receipt Date: 20200803
  Transmission Date: 20201103
  Serious: Yes (Hospitalization)
  Sender: FDA-Public Use
  Company Number: None

PATIENT
  Age: 21 Year
  Sex: Female

DRUGS (12)
  1. PULMOZYME [Suspect]
     Active Substance: DORNASE ALFA
     Indication: CYSTIC FIBROSIS
     Route: 055
     Dates: start: 20180615
  2. LAMOTRIGINE. [Concomitant]
     Active Substance: LAMOTRIGINE
  3. METRONIDAZOL [Concomitant]
     Active Substance: METRONIDAZOLE
  4. ARNUITY ELPT [Concomitant]
  5. PREDNISONE. [Concomitant]
     Active Substance: PREDNISONE
  6. MONTELUKAST [Concomitant]
     Active Substance: MONTELUKAST SODIUM
  7. SODIUM CHLOR NEB 7% [Concomitant]
  8. AZITHROMYCIN ANHYDROUS. [Concomitant]
     Active Substance: AZITHROMYCIN ANHYDROUS
  9. GABAPENTIN. [Concomitant]
     Active Substance: GABAPENTIN
  10. SMZ/TMP DS [Concomitant]
     Active Substance: SULFAMETHOXAZOLE\TRIMETHOPRIM
  11. ALBUTEROL AER [Concomitant]
     Active Substance: ALBUTEROL
  12. LINEZOLID. [Concomitant]
     Active Substance: LINEZOLID

REACTIONS (2)
  - Dyspnoea [None]
  - Cough [None]

NARRATIVE: CASE EVENT DATE: 20200710
